FAERS Safety Report 8818409 (Version 3)
Quarter: 2014Q3

REPORT INFORMATION
  Report Type: Spontaneous
  Country: US (occurrence: US)
  Receive Date: 20121001
  Receipt Date: 20140812
  Transmission Date: 20150326
  Serious: Yes (Hospitalization, Other)
  Sender: FDA-Public Use
  Company Number: US-ROCHE-1056144

PATIENT
  Sex: Female
  Weight: 113.5 kg

DRUGS (1)
  1. ACCUTANE [Suspect]
     Active Substance: ISOTRETINOIN
     Indication: ACNE
     Route: 065
     Dates: start: 1987, end: 1988

REACTIONS (8)
  - Perirectal abscess [Unknown]
  - Fistula [Unknown]
  - Intestinal obstruction [Unknown]
  - Panic attack [Unknown]
  - Crohn^s disease [Unknown]
  - Depression [Unknown]
  - Colitis ulcerative [Unknown]
  - Inflammatory bowel disease [Unknown]

NARRATIVE: CASE EVENT DATE: 1994
